FAERS Safety Report 9537009 (Version 1)
Quarter: 2013Q3

REPORT INFORMATION
  Report Type: Spontaneous
  Country: US (occurrence: None)
  Receive Date: 20130918
  Receipt Date: 20130918
  Transmission Date: 20140515
  Serious: No
  Sender: FDA-Public Use
  Company Number: None

PATIENT
  Age: 23 Year
  Sex: Female
  Weight: 59.42 kg

DRUGS (1)
  1. MIRENA INTRAUTERINE SYSTEM [Suspect]
     Indication: CONTRACEPTION

REACTIONS (3)
  - Vulvovaginal pain [None]
  - Vaginal infection [None]
  - Device breakage [None]
